FAERS Safety Report 9827320 (Version 3)
Quarter: 2014Q2

REPORT INFORMATION
  Report Type: Spontaneous
  Country: US (occurrence: US)
  Receive Date: 20140117
  Receipt Date: 20140408
  Transmission Date: 20141212
  Serious: Yes (Hospitalization, Other)
  Sender: FDA-Public Use
  Company Number: US-PFIZER INC-2014011807

PATIENT
  Age: 56 Year
  Sex: Female
  Weight: 56.4 kg

DRUGS (9)
  1. CARVEDILOL [Suspect]
     Dosage: 6.25 MG, 2X/DAY
     Route: 065
  2. LIDOCAINE HCL [Suspect]
     Indication: LOCAL ANAESTHESIA
     Dosage: 20 ML OF 2% (TOTAL 1200 MG)
     Route: 058
  3. LIDOCAINE HCL [Suspect]
     Indication: IMPLANTABLE DEFIBRILLATOR INSERTION
     Dosage: ADDITIONAL 10 ML (TOTAL 1200 MG)
     Route: 058
  4. LIDOCAINE HCL [Suspect]
     Dosage: ADDITIONAL 30 ML OF 2% (TOTAL 1200 MG)
     Route: 058
  5. ISOSORBIDE DINITRATE [Suspect]
     Dosage: 10 MG, 3X/DAY
     Route: 065
  6. CANDESARTAN [Concomitant]
     Dosage: 16 MG, DAILY
  7. HYDRALAZINE [Concomitant]
     Dosage: 25 MG, 3X/DAY
  8. MIDAZOLAM [Concomitant]
     Indication: SEDATION
     Dosage: 1 MG, UNK
     Route: 042
  9. FENTANYL [Concomitant]
     Indication: SEDATION
     Dosage: 50 UG, UNK
     Route: 042

REACTIONS (5)
  - Overdose [Unknown]
  - Anaesthetic complication [Recovered/Resolved]
  - Generalised tonic-clonic seizure [Recovered/Resolved]
  - Metabolic acidosis [Recovered/Resolved]
  - Respiratory acidosis [Recovered/Resolved]
